FAERS Safety Report 13845287 (Version 1)
Quarter: 2017Q3

REPORT INFORMATION
  Report Type: Spontaneous
  Country: US (occurrence: US)
  Receive Date: 20170808
  Receipt Date: 20170808
  Transmission Date: 20171127
  Serious: Yes (Hospitalization)
  Sender: FDA-Public Use
  Company Number: US-DEPOMED, INC.-US-2017DEP000060

PATIENT

DRUGS (1)
  1. CAMBIA [Suspect]
     Active Substance: DICLOFENAC POTASSIUM
     Indication: RADICULOPATHY
     Dosage: 50 MG, PRN, EVERY OTHER DAY
     Route: 048
     Dates: start: 20161122

REACTIONS (5)
  - Nausea [Recovered/Resolved]
  - Hepatic enzyme increased [Recovered/Resolved]
  - Abdominal pain [Recovered/Resolved]
  - Pyrexia [Recovered/Resolved]
  - Product use in unapproved indication [Unknown]
